FAERS Safety Report 10164289 (Version 2)
Quarter: 2014Q2

REPORT INFORMATION
  Report Type: Spontaneous
  Country: US (occurrence: US)
  Receive Date: 20140510
  Receipt Date: 20140510
  Transmission Date: 20141212
  Serious: No
  Sender: FDA-Public Use
  Company Number: US-BRISTOL-MYERS SQUIBB COMPANY-20030581

PATIENT
  Age: 61 Year
  Sex: Male
  Weight: 92.97 kg

DRUGS (2)
  1. BYDUREON [Suspect]
     Indication: TYPE 2 DIABETES MELLITUS
  2. METFORMIN HCL TABS [Concomitant]
     Dosage: THREE TABS PO; QD
     Route: 048

REACTIONS (1)
  - Drug dose omission [Unknown]
